FAERS Safety Report 24953548 (Version 8)
Quarter: 2025Q4

REPORT INFORMATION
  Report Type: Report from Study
  Country: US (occurrence: US)
  Receive Date: 20250211
  Receipt Date: 20251229
  Transmission Date: 20260117
  Serious: Yes (Hospitalization, Other)
  Sender: TAKEDA
  Company Number: US-TAKEDA-2025TUS013259

PATIENT
  Age: 76 Year

DRUGS (5)
  1. VEDOLIZUMAB [Suspect]
     Active Substance: VEDOLIZUMAB
     Indication: Crohn^s disease
     Dosage: 300 MILLIGRAM
  2. VITAMIN B12 [Suspect]
     Active Substance: CYANOCOBALAMIN
     Indication: Product used for unknown indication
     Dosage: UNK
  3. MORPHINE [Concomitant]
     Active Substance: MORPHINE
     Indication: Pain
     Dosage: 50 MILLIGRAM
  4. IRON [Concomitant]
     Active Substance: IRON
     Dosage: UNK
  5. BENADRYL [Concomitant]
     Active Substance: DIPHENHYDRAMINE HYDROCHLORIDE
     Dosage: UNK

REACTIONS (24)
  - Abdominal pain upper [Recovered/Resolved]
  - Renal impairment [Not Recovered/Not Resolved]
  - Atypical pneumonia [Recovered/Resolved]
  - Chronic kidney disease [Not Recovered/Not Resolved]
  - Dehydration [Not Recovered/Not Resolved]
  - Pain [Recovered/Resolved]
  - Vomiting [Recovered/Resolved]
  - Constipation [Recovered/Resolved]
  - Headache [Recovered/Resolved]
  - Tooth disorder [Not Recovered/Not Resolved]
  - Muscular weakness [Not Recovered/Not Resolved]
  - Food poisoning [Not Recovered/Not Resolved]
  - Full blood count decreased [Unknown]
  - Poor venous access [Unknown]
  - Musculoskeletal pain [Recovered/Resolved]
  - Change of bowel habit [Recovered/Resolved]
  - Product dose omission issue [Unknown]
  - Weight decreased [Unknown]
  - Illness [Not Recovered/Not Resolved]
  - Stress [Not Recovered/Not Resolved]
  - Asthenia [Not Recovered/Not Resolved]
  - Pruritus [Recovered/Resolved]
  - Pain in extremity [Not Recovered/Not Resolved]
  - Cough [Recovered/Resolved]

NARRATIVE: CASE EVENT DATE: 20200101
